FAERS Safety Report 8206388-8 (Version None)
Quarter: 2012Q1

REPORT INFORMATION
  Report Type: 
  Country: None (occurrence: None)
  Receive Date: 20120313
  Receipt Date: 20120130
  Transmission Date: 20120608
  Serious: Yes (Hospitalization)
  Sender: FDA-Public Use
  Company Number: US-ROCHE-1047083

PATIENT
  Sex: Male
  Weight: 4.4 kg

DRUGS (4)
  1. OMALIZUMAB [Suspect]
     Dosage: 375 MG, Q3W
     Route: 058
     Dates: start: 20110713
  2. OMALIZUMAB [Suspect]
     Dosage: 375 MG, Q3W
     Route: 058
     Dates: start: 20110915
  3. OMALIZUMAB [Suspect]
     Indication: ASTHMA
     Dosage: 375 MG, Q3W
     Route: 058
     Dates: start: 20080306, end: 20110511
  4. OMALIZUMAB [Suspect]
     Dosage: 375 MG, Q3W
     Route: 058
     Dates: start: 20110818

REACTIONS (2)
  - MATERNAL EXPOSURE TIMING UNSPECIFIED [None]
  - POST PROCEDURAL HAEMORRHAGE [None]
